FAERS Safety Report 8376417-X (Version None)
Quarter: 2012Q2

REPORT INFORMATION
  Report Type: 
  Country: None (occurrence: None)
  Receive Date: 20120522
  Receipt Date: 20120521
  Transmission Date: 20120825
  Serious: Yes (Death)
  Sender: FDA-Public Use
  Company Number: PHHY2012AU041175

PATIENT
  Sex: Female

DRUGS (2)
  1. ZOLEDRONOC ACID [Suspect]
     Route: 042
     Dates: start: 20100623
  2. ZOLEDRONOC ACID [Suspect]
     Route: 042
     Dates: start: 20110518

REACTIONS (1)
  - DEATH [None]
